FAERS Safety Report 14347574 (Version 1)
Quarter: 2018Q1

REPORT INFORMATION
  Report Type: Spontaneous
  Country: JP (occurrence: JP)
  Receive Date: 20180103
  Receipt Date: 20180103
  Transmission Date: 20180509
  Serious: Yes (Death)
  Sender: FDA-Public Use
  Company Number: JP-BAYER-2017-204507

PATIENT
  Age: 82 Year
  Sex: Male
  Weight: 46 kg

DRUGS (9)
  1. NEXAVAR [Suspect]
     Active Substance: SORAFENIB
     Indication: HEPATOCELLULAR CARCINOMA
     Dosage: 200 MG, QD
     Route: 048
     Dates: start: 20170112, end: 20170621
  2. FAMOTIDINE. [Concomitant]
     Active Substance: FAMOTIDINE
     Dosage: DAILY DOSE 20 MG
     Route: 048
     Dates: end: 20170914
  3. FERROMIA [Concomitant]
     Active Substance: SODIUM FERROUS CITRATE
     Dosage: DAILY DOSE 50 MG
     Dates: end: 20170914
  4. PHARPRIL [Concomitant]
     Dosage: DAILY DOSE 5 MG
     Route: 048
     Dates: end: 20170914
  5. URIEF [Concomitant]
     Active Substance: SILODOSIN
     Dosage: DAILY DOSE 8 MG
     Route: 048
     Dates: end: 20170914
  6. EVIPROSTAT [Concomitant]
     Active Substance: CHIMAPHILA UMBELLATA\MANGANESE CHLORIDE\POPULUS TREMULOIDES\SODIUM TAUROCHOLATE
     Dosage: DAILY DOSE 3 DF
     Route: 048
     Dates: end: 20170914
  7. LIVACT [Concomitant]
     Active Substance: AMINO ACIDS
     Dosage: DAILY DOSE 12.45 G
     Route: 048
     Dates: end: 20170914
  8. DABIGATRAN [Concomitant]
     Active Substance: DABIGATRAN
     Dosage: DAILY DOSE 220 MG
     Route: 048
     Dates: end: 20170914
  9. THYRADIN [Concomitant]
     Active Substance: LEVOTHYROXINE
     Dosage: DAILY DOSE 75 ?G
     Route: 048
     Dates: end: 20170914

REACTIONS (5)
  - Malaise [Recovering/Resolving]
  - Hepatocellular carcinoma [Fatal]
  - Pleural effusion [None]
  - Liver disorder [Recovering/Resolving]
  - Decreased appetite [Recovering/Resolving]

NARRATIVE: CASE EVENT DATE: 20170622
